FAERS Safety Report 7227816-0 (Version None)
Quarter: 2011Q1

REPORT INFORMATION
  Report Type: 
  Country: None (occurrence: None)
  Receive Date: 20110114
  Receipt Date: 20110112
  Transmission Date: 20110831
  Serious: Yes (Death)
  Sender: FDA-Public Use
  Company Number: VE-PFIZER INC-2011008087

PATIENT
  Age: 74 Year
  Sex: Female

DRUGS (4)
  1. BETACAROTENE [Concomitant]
     Indication: DIABETIC VASCULAR DISORDER
     Dosage: 1 TAB, 3X/DAY
     Route: 048
     Dates: end: 20110104
  2. AMARYL [Concomitant]
     Indication: DIABETES MELLITUS
     Dosage: 2 MG, 1X/DAY
     Route: 048
     Dates: end: 20110104
  3. LIPITOR [Suspect]
     Indication: DIABETIC VASCULAR DISORDER
     Dosage: 80 MG, 1X/DAY
     Route: 048
     Dates: start: 20101102, end: 20110103
  4. CILOSTAZOL [Concomitant]
     Indication: DIABETIC VASCULAR DISORDER
     Dosage: 100 MG, 2X/DAY
     Route: 048
     Dates: end: 20110104

REACTIONS (1)
  - ARRHYTHMIA [None]
